FAERS Safety Report 4555698-4 (Version None)
Quarter: 2005Q1

REPORT INFORMATION
  Report Type: 
  Country: None (occurrence: None)
  Receive Date: 20050111
  Receipt Date: 20041007
  Transmission Date: 20050727
  Serious: No
  Sender: FDA-Public Use
  Company Number: 2004S1000219

PATIENT
  Age: 49 Year
  Sex: Male
  Weight: 95.3 kg

DRUGS (6)
  1. CUBICIN [Suspect]
     Indication: ARTHRITIS INFECTIVE
     Dosage: 570 MG;Q24H;IV
     Route: 042
     Dates: start: 20040924
  2. CUBICIN [Suspect]
     Indication: HIP ARTHROPLASTY
     Dosage: 570 MG;Q24H;IV
     Route: 042
     Dates: start: 20040924
  3. VANCOMYCIN [Concomitant]
  4. SYNERCID [Concomitant]
  5. CEFEPIME [Concomitant]
  6. LOSARTAN [Concomitant]

REACTIONS (2)
  - BLOOD CREATINE PHOSPHOKINASE INCREASED [None]
  - GOUT [None]
